FAERS Safety Report 16946838 (Version 1)
Quarter: 2019Q4

REPORT INFORMATION
  Report Type: Spontaneous
  Country: FR (occurrence: FR)
  Receive Date: 20191022
  Receipt Date: 20191022
  Transmission Date: 20200122
  Serious: Yes (Life-Threatening)
  Sender: FDA-Public Use
  Company Number: FR-PFIZER INC-2019453765

PATIENT
  Sex: Female

DRUGS (2)
  1. PROSTINE E2 [Suspect]
     Active Substance: DINOPROSTONE
     Indication: LABOUR INDUCTION
     Dosage: 2 MG / 3 G
     Route: 064
     Dates: start: 20191002, end: 20191002
  2. PROSTINE E2 [Suspect]
     Active Substance: DINOPROSTONE
     Indication: PROLONGED PREGNANCY

REACTIONS (2)
  - Bradycardia foetal [Recovered/Resolved]
  - Foetal exposure during delivery [Recovered/Resolved]

NARRATIVE: CASE EVENT DATE: 20191002
